FAERS Safety Report 6240453-X (Version None)
Quarter: 2009Q2

REPORT INFORMATION
  Report Type: 
  Country: None (occurrence: None)
  Receive Date: 20090619
  Receipt Date: 20090604
  Transmission Date: 20091009
  Serious: Yes (Hospitalization)
  Sender: FDA-Public Use
  Company Number: 8047532

PATIENT
  Age: 65 Year
  Sex: Female
  Weight: 63.6 kg

DRUGS (3)
  1. CIMZIA [Suspect]
     Indication: CROHN'S DISEASE
  2. PREDNISONE TAB [Concomitant]
  3. MULTI-VITAMINS [Concomitant]

REACTIONS (2)
  - HAEMOGLOBIN DECREASED [None]
  - INTESTINAL RESECTION [None]
